FAERS Safety Report 19004809 (Version 1)
Quarter: 2021Q1

REPORT INFORMATION
  Report Type: Spontaneous
  Country: CN (occurrence: CN)
  Receive Date: 20210313
  Receipt Date: 20210313
  Transmission Date: 20210420
  Serious: Yes (Other)
  Sender: FDA-Public Use
  Company Number: CN-JNJFOC-20191119407

PATIENT
  Age: 37 Year
  Sex: Male
  Weight: 76 kg

DRUGS (4)
  1. CIMETIDINE W/PROGLUMIDE [Suspect]
     Active Substance: CIMETIDINE\PROGLUMIDE
     Indication: GASTRITIS
     Dosage: 2.000000
     Route: 048
     Dates: start: 20191013, end: 20191013
  2. SODIUM RABEPRAZOLE [Suspect]
     Active Substance: RABEPRAZOLE SODIUM
     Indication: GASTRITIS
     Route: 048
     Dates: start: 20191013, end: 20191013
  3. IMODIUM [Suspect]
     Active Substance: LOPERAMIDE HYDROCHLORIDE
     Indication: GASTRITIS
     Route: 048
     Dates: start: 20191013, end: 20191013
  4. NORFLOXACIN [Suspect]
     Active Substance: NORFLOXACIN
     Indication: GASTRITIS
     Route: 048
     Dates: start: 20191013, end: 20191013

REACTIONS (4)
  - Rash [Recovering/Resolving]
  - Product use in unapproved indication [Unknown]
  - Off label use [Unknown]
  - Swelling [Recovering/Resolving]

NARRATIVE: CASE EVENT DATE: 20191013
